FAERS Safety Report 9723825 (Version 1)
Quarter: 2013Q4

REPORT INFORMATION
  Report Type: Spontaneous
  Country: US (occurrence: US)
  Receive Date: 20131202
  Receipt Date: 20131202
  Transmission Date: 20140711
  Serious: No
  Sender: FDA-Public Use
  Company Number: US-GILEAD-2013-0088647

PATIENT
  Age: 19 Year
  Sex: Female

DRUGS (1)
  1. CAYSTON [Suspect]
     Indication: PSEUDOMONAS INFECTION
     Route: 055

REACTIONS (3)
  - Fatigue [Recovering/Resolving]
  - Forced expiratory volume decreased [Recovering/Resolving]
  - Cough [Recovering/Resolving]
